FAERS Safety Report 23748089 (Version 1)
Quarter: 2024Q2

REPORT INFORMATION
  Report Type: Spontaneous
  Country: FR (occurrence: None)
  Receive Date: 20240416
  Receipt Date: 20240416
  Transmission Date: 20240716
  Serious: Yes (Other)
  Sender: FDA-Public Use
  Company Number: 2024A088877

PATIENT
  Age: 78 Year
  Sex: Female

DRUGS (2)
  1. TAGRISSO [Suspect]
     Active Substance: OSIMERTINIB
     Indication: Lung adenocarcinoma
     Route: 048
     Dates: start: 20240331
  2. LEVETIRACETAM [Concomitant]
     Active Substance: LEVETIRACETAM

REACTIONS (5)
  - Hemiplegia [Unknown]
  - Apathy [Unknown]
  - Salivary hypersecretion [Unknown]
  - Dysphagia [Unknown]
  - Speech disorder [Unknown]
